FAERS Safety Report 5248299-6 (Version None)
Quarter: 2007Q1

REPORT INFORMATION
  Report Type: 
  Country: None (occurrence: None)
  Receive Date: 20070227
  Receipt Date: 20070216
  Transmission Date: 20070707
  Serious: Yes (Other)
  Sender: FDA-Public Use
  Company Number: ZAWYE712118FEB07

PATIENT
  Age: 50 Year
  Sex: Female

DRUGS (2)
  1. PREMARIN [Suspect]
     Indication: MENOPAUSE
     Dosage: UNKNOWN AT THIS TIME
     Route: 048
     Dates: start: 20070207
  2. CYMBALTA [Concomitant]

REACTIONS (2)
  - DEAFNESS [None]
  - TINNITUS [None]
